FAERS Safety Report 22272922 (Version 1)
Quarter: 2023Q2

REPORT INFORMATION
  Report Type: Report from Study
  Country: US (occurrence: US)
  Receive Date: 20230502
  Receipt Date: 20230502
  Transmission Date: 20230722
  Serious: Yes (Other)
  Sender: FDA-Public Use
  Company Number: US-002147023-NVSC2023US094424

PATIENT
  Age: 52 Year
  Sex: Female

DRUGS (1)
  1. LEQVIO [Suspect]
     Active Substance: INCLISIRAN SODIUM
     Indication: Product used for unknown indication
     Dosage: UNK
     Route: 058
     Dates: start: 20230421

REACTIONS (8)
  - Cardiac arrest [Unknown]
  - Pyrexia [Unknown]
  - Contusion [Unknown]
  - Oral herpes [Unknown]
  - Infectious mononucleosis [Unknown]
  - Dysphagia [Unknown]
  - Oropharyngeal pain [Unknown]
  - Malaise [Unknown]

NARRATIVE: CASE EVENT DATE: 20230421
